FAERS Safety Report 12706586 (Version 1)
Quarter: 2016Q3

REPORT INFORMATION
  Report Type: Spontaneous
  Country: CN (occurrence: CN)
  Receive Date: 20160901
  Receipt Date: 20160901
  Transmission Date: 20161109
  Serious: Yes (Other)
  Sender: FDA-Public Use
  Company Number: CN-CELGENEUS-CHN-2016084314

PATIENT

DRUGS (4)
  1. GRANULOCYTE COLONY STIMULATING FACTOR [Concomitant]
     Active Substance: GRANULOCYTE COLONY-STIMULATING FACTOR NOS
     Indication: PRODUCT USED FOR UNKNOWN INDICATION
     Route: 065
  2. TROPISETRON [Concomitant]
     Active Substance: TROPISETRON
     Indication: PROPHYLAXIS OF NAUSEA AND VOMITING
     Route: 065
  3. TROPISETRON [Concomitant]
     Active Substance: TROPISETRON
     Indication: PROPHYLAXIS OF NAUSEA AND VOMITING
  4. ABRAXANE [Suspect]
     Active Substance: PACLITAXEL
     Indication: OVARIAN CANCER
     Dosage: 100-120MG/M2
     Route: 041

REACTIONS (12)
  - Platelet count decreased [Unknown]
  - Embolism [Unknown]
  - Proteinuria [Recovered/Resolved]
  - Haemorrhage [Recovered/Resolved]
  - White blood cell count decreased [Unknown]
  - Mucosal inflammation [Unknown]
  - Melaena [Recovered/Resolved]
  - Nausea [Unknown]
  - Vomiting [Unknown]
  - Neuropathy peripheral [Unknown]
  - Bone marrow failure [Unknown]
  - Hypertension [Recovered/Resolved]
